FAERS Safety Report 14644047 (Version 1)
Quarter: 2018Q1

REPORT INFORMATION
  Report Type: Spontaneous
  Country: GB (occurrence: GB)
  Receive Date: 20180315
  Receipt Date: 20180315
  Transmission Date: 20180509
  Serious: Yes (Other)
  Sender: FDA-Public Use
  Company Number: GB-PFIZER INC-2018099611

PATIENT
  Age: 74 Year
  Sex: Male
  Weight: 90 kg

DRUGS (13)
  1. AMOXICILLIN. [Concomitant]
     Active Substance: AMOXICILLIN
     Dosage: 3 DF, ONCE DAILY
     Dates: start: 20180101, end: 20180108
  2. CALCEOS [Concomitant]
     Active Substance: CALCIUM CARBONATE\CHOLECALCIFEROL
     Dosage: 2 DF, ONCE DAILY
     Dates: start: 20140414, end: 20171228
  3. BISOPROLOL [Concomitant]
     Active Substance: BISOPROLOL
     Dosage: 2 DF, ONCE DAILY
     Dates: start: 20130513
  4. PRAVASTATIN. [Concomitant]
     Active Substance: PRAVASTATIN
     Dosage: 1 DF, ONCE DAILY (AT NIGHT)
     Dates: start: 20130513
  5. FELODIPINE. [Concomitant]
     Active Substance: FELODIPINE
     Dosage: 2 DF, ONCE DAILY
     Dates: start: 20130513, end: 20171204
  6. RIVAROXABAN [Concomitant]
     Active Substance: RIVAROXABAN
     Dosage: 1 DF, ONCE DAILY (WITH FOOD)
     Dates: start: 20171228
  7. EZETIMIBE. [Concomitant]
     Active Substance: EZETIMIBE
     Dosage: 1 DF, ONCE DAILY
     Dates: start: 20151106
  8. DOXAZOSIN MESILATE [Suspect]
     Active Substance: DOXAZOSIN MESYLATE
     Dosage: 4 MG, UNK
     Dates: start: 20180119
  9. RAMIPRIL. [Concomitant]
     Active Substance: RAMIPRIL
     Dosage: 1 DF, ONCE DAILY
     Dates: start: 20130513
  10. GLICLAZIDE [Concomitant]
     Active Substance: GLICLAZIDE
     Dosage: 5 DOSAGE FORM (DF), ONCE DAILY (TAKE 1 AM, 1 AND 1/2 PM)
     Dates: start: 20130513
  11. AMLODIPINE [Concomitant]
     Active Substance: AMLODIPINE BESYLATE
     Dosage: 1 DF, ONCE DAILY
     Dates: start: 20171121
  12. LANSOPRAZOLE. [Concomitant]
     Active Substance: LANSOPRAZOLE
     Dosage: 1 DF, ONCE DAILY
     Dates: start: 20131002
  13. ADCAL D [Concomitant]
     Dosage: 4 DF, ONCE DAILY
     Dates: start: 20171228

REACTIONS (1)
  - Gout [Recovered/Resolved]

NARRATIVE: CASE EVENT DATE: 20180119
